FAERS Safety Report 12821029 (Version 1)
Quarter: 2016Q4

REPORT INFORMATION
  Report Type: Spontaneous
  Country: US (occurrence: US)
  Receive Date: 20161006
  Receipt Date: 20161006
  Transmission Date: 20170207
  Serious: Yes (Other)
  Sender: FDA-Public Use
  Company Number: US-PFIZER INC-2016449353

PATIENT
  Age: 7 Decade
  Sex: Female

DRUGS (1)
  1. SUTENT [Suspect]
     Active Substance: SUNITINIB MALATE
     Indication: RENAL CELL CARCINOMA
     Dosage: CYCLIC (THIRD CYCLE OF 21 REGIMEN), 2/1 DOSING REGIMEN

REACTIONS (3)
  - Thrombotic thrombocytopenic purpura [Unknown]
  - Petechiae [Unknown]
  - Immune thrombocytopenic purpura [Unknown]
